FAERS Safety Report 9927432 (Version 2)
Quarter: 2020Q3

REPORT INFORMATION
  Report Type: Spontaneous
  Country: IT (occurrence: IT)
  Receive Date: 20140227
  Receipt Date: 20140705
  Transmission Date: 20201104
  Serious: Yes (Other)
  Sender: FDA-Public Use
  Company Number: IT-ABBVIE-14P-083-1204382-00

PATIENT
  Age: 48 Year
  Sex: Male

DRUGS (4)
  1. COPEGUS [Suspect]
     Active Substance: RIBAVIRIN
     Indication: HEPATITIS C
     Route: 048
     Dates: start: 20110302, end: 20110816
  2. RITONAVIR. [Suspect]
     Active Substance: RITONAVIR
     Indication: HEPATITIS C
     Route: 048
     Dates: start: 20110302, end: 20110816
  3. DANOPREVIR. [Suspect]
     Active Substance: DANOPREVIR
     Indication: HEPATITIS C
     Dates: start: 20110302, end: 20110816
  4. PEGASYS [Suspect]
     Active Substance: PEGINTERFERON ALFA-2A
     Indication: HEPATITIS C
     Route: 058
     Dates: start: 20110302, end: 20110816

REACTIONS (3)
  - Gingival recession [Unknown]
  - Gingivitis ulcerative [Not Recovered/Not Resolved]
  - Dyspepsia [Unknown]

NARRATIVE: CASE EVENT DATE: 20110317
